FAERS Safety Report 9302240 (Version 1)
Quarter: 2013Q2

REPORT INFORMATION
  Report Type: Spontaneous
  Country: US (occurrence: US)
  Receive Date: 20130522
  Receipt Date: 20130522
  Transmission Date: 20140414
  Serious: No
  Sender: FDA-Public Use
  Company Number: US-009507513-1305USA012019

PATIENT
  Sex: Male

DRUGS (10)
  1. VICTRELIS [Suspect]
     Dosage: 4 CAPSULES THREE TIMES A DAY FOR EVERY 7-9 HOURS STARTING ON WEEK 5
     Route: 048
  2. PEGASYS [Suspect]
     Dosage: 180 MICROGRAM / M
  3. RIBAPAK [Suspect]
     Dosage: 1000 PER DAY
  4. NORVASC [Concomitant]
  5. CARAFATE [Concomitant]
  6. METFORMIN [Concomitant]
  7. LISINOPRIL [Concomitant]
  8. OMEPRAZOLE [Concomitant]
  9. SPIRIVA HANDIHALER [Concomitant]
     Dosage: INHALATION
     Route: 055
  10. XIFAXAN [Concomitant]

REACTIONS (5)
  - Increased appetite [Unknown]
  - Groin pain [Unknown]
  - Influenza like illness [Unknown]
  - Fatigue [Unknown]
  - Dry mouth [Unknown]
